FAERS Safety Report 18668990 (Version 4)
Quarter: 2021Q2

REPORT INFORMATION
  Report Type: Report from Study
  Country: US (occurrence: US)
  Receive Date: 20201228
  Receipt Date: 20210626
  Transmission Date: 20210717
  Serious: No
  Sender: FDA-Public Use
  Company Number: NVSC2020US339594

PATIENT
  Age: 45 Year
  Sex: Female

DRUGS (1)
  1. GILENYA [Suspect]
     Active Substance: FINGOLIMOD HYDROCHLORIDE
     Indication: MULTIPLE SCLEROSIS
     Dosage: 0.5 MG, QD
     Route: 048
     Dates: start: 20201218

REACTIONS (8)
  - Musculoskeletal discomfort [Unknown]
  - Diarrhoea [Unknown]
  - Arthralgia [Unknown]
  - Central nervous system lesion [Unknown]
  - Movement disorder [Unknown]
  - Dry mouth [Unknown]
  - Vitamin B12 deficiency [Unknown]
  - Fatigue [Unknown]

NARRATIVE: CASE EVENT DATE: 20201218
